FAERS Safety Report 5345264-5 (Version None)
Quarter: 2007Q2

REPORT INFORMATION
  Report Type: 
  Country: None (occurrence: None)
  Receive Date: 20070601
  Receipt Date: 20070521
  Transmission Date: 20071010
  Serious: Yes (Hospitalization)
  Sender: FDA-Public Use
  Company Number: 2007-01586

PATIENT
  Age: 48 Year
  Sex: Female

DRUGS (36)
  1. VELCADE [Suspect]
     Indication: MULTIPLE MYELOMA
     Dates: start: 20040710
  2. VELCADE [Suspect]
     Indication: MULTIPLE MYELOMA
     Dates: start: 20040812
  3. VELCADE [Suspect]
     Indication: MULTIPLE MYELOMA
     Dates: start: 20060613
  4. DEXAMETHASONE TAB [Suspect]
     Indication: MULTIPLE MYELOMA
     Dosage: SEE IMAGE
     Route: 048
     Dates: start: 20061128, end: 20061201
  5. DEXAMETHASONE TAB [Suspect]
     Indication: MULTIPLE MYELOMA
     Dosage: SEE IMAGE
     Route: 048
     Dates: start: 20040710
  6. DEXAMETHASONE TAB [Suspect]
     Indication: MULTIPLE MYELOMA
     Dosage: SEE IMAGE
     Route: 048
     Dates: start: 20040812
  7. DEXAMETHASONE TAB [Suspect]
     Indication: MULTIPLE MYELOMA
     Dosage: SEE IMAGE
     Route: 048
     Dates: start: 20060612
  8. THALIDOMIDE [Suspect]
     Indication: MULTIPLE MYELOMA
     Dosage: SEE IMAGE
     Route: 048
     Dates: start: 20061013, end: 20061213
  9. THALIDOMIDE [Suspect]
     Indication: MULTIPLE MYELOMA
     Dosage: SEE IMAGE
     Route: 048
     Dates: start: 20040710
  10. THALIDOMIDE [Suspect]
     Indication: MULTIPLE MYELOMA
     Dosage: SEE IMAGE
     Route: 048
     Dates: start: 20040812
  11. THALIDOMIDE [Suspect]
     Indication: MULTIPLE MYELOMA
     Dosage: SEE IMAGE
     Route: 048
     Dates: start: 20060613
  12. CISPLATIN [Suspect]
     Indication: MULTIPLE MYELOMA
     Dates: start: 20040710
  13. CISPLATIN [Suspect]
     Indication: MULTIPLE MYELOMA
     Dates: start: 20040822
  14. CISPLATIN [Suspect]
     Indication: MULTIPLE MYELOMA
     Dates: start: 20060613
  15. ADRIAMYCIN (DOXORUBIN) VIAL [Suspect]
     Indication: MULTIPLE MYELOMA
     Dates: start: 20040710
  16. ADRIAMYCIN (DOXORUBIN) VIAL [Suspect]
     Indication: MULTIPLE MYELOMA
     Dates: start: 20040812
  17. ADRIAMYCIN (DOXORUBIN) VIAL [Suspect]
     Indication: MULTIPLE MYELOMA
     Dates: start: 20060613
  18. CYCLOPHOSPHAMIDE [Suspect]
     Indication: MULTIPLE MYELOMA
     Dates: start: 20040710
  19. CYCLOPHOSPHAMIDE [Suspect]
     Indication: MULTIPLE MYELOMA
     Dates: start: 20040812
  20. CYCLOPHOSPHAMIDE [Suspect]
     Indication: MULTIPLE MYELOMA
     Dates: start: 20060613
  21. ETOPOSIDE [Suspect]
     Indication: MULTIPLE MYELOMA
     Dates: start: 20040710
  22. ETOPOSIDE [Suspect]
     Indication: MULTIPLE MYELOMA
     Dates: start: 20040812
  23. ETOPOSIDE [Suspect]
     Indication: MULTIPLE MYELOMA
     Dates: start: 20060613
  24. MELPHALAN (MELPHALAN) VIAL [Suspect]
     Indication: MULTIPLE MYELOMA
     Dates: start: 20040924
  25. MELPHALAN (MELPHALAN) VIAL [Suspect]
     Indication: MULTIPLE MYELOMA
     Dates: start: 20041206
  26. XOPENEX [Concomitant]
  27. ADVAIR DISKUS 100/50 [Concomitant]
  28. LEVAQUIN [Concomitant]
  29. ACYCLOVIR [Concomitant]
  30. FOLIC ACID [Concomitant]
  31. OXYCODONE HCL [Concomitant]
  32. DURAGESIC-100 [Concomitant]
  33. ASCORBIC ACID [Concomitant]
  34. DIFLUCIN (FLUCONAZOLE) [Concomitant]
  35. ZANTAC [Concomitant]
  36. PREDNISONE TAB [Concomitant]

REACTIONS (8)
  - BLOOD GLUCOSE INCREASED [None]
  - BREATH SOUNDS ABNORMAL [None]
  - CHEST PAIN [None]
  - COUGH [None]
  - DYSPNOEA [None]
  - NASAL SEPTUM DEVIATION [None]
  - PLEURITIC PAIN [None]
  - WHEEZING [None]
